FAERS Safety Report 6846128-8 (Version None)
Quarter: 2010Q3

REPORT INFORMATION
  Report Type: 
  Country: None (occurrence: None)
  Receive Date: 20100712
  Receipt Date: 20100629
  Transmission Date: 20110219
  Serious: Yes (Other)
  Sender: FDA-Public Use
  Company Number: RB-09972-2010

PATIENT
  Age: 33 Year
  Sex: Female

DRUGS (2)
  1. BUPRENORPHINE [Suspect]
     Indication: PRODUCT USED FOR UNKNOWN INDICATION
  2. SUBUTEX [Suspect]

REACTIONS (5)
  - ALPHA 1 FOETOPROTEIN ABNORMAL [None]
  - CHILLS [None]
  - COLD SWEAT [None]
  - PREGNANCY [None]
  - VOMITING IN PREGNANCY [None]
